FAERS Safety Report 25002776 (Version 1)
Quarter: 2025Q1

REPORT INFORMATION
  Report Type: Spontaneous
  Country: DE (occurrence: DE)
  Receive Date: 20250224
  Receipt Date: 20250224
  Transmission Date: 20250409
  Serious: Yes (Hospitalization, Other)
  Sender: STRIDES
  Company Number: DE-STRIDES ARCOLAB LIMITED-2025SP002311

PATIENT
  Age: 89 Year
  Sex: Female

DRUGS (2)
  1. METHOTREXATE [Suspect]
     Active Substance: METHOTREXATE
     Indication: Product used for unknown indication
     Route: 065
  2. FOLIC ACID [Concomitant]
     Active Substance: FOLIC ACID
     Indication: Product used for unknown indication
     Route: 065

REACTIONS (10)
  - General physical health deterioration [Unknown]
  - Influenza like illness [Unknown]
  - Incorrect dosage administered [Unknown]
  - Toxicity to various agents [Unknown]
  - Encephalopathy [Unknown]
  - Nausea [Unknown]
  - Vomiting [Unknown]
  - Diarrhoea [Unknown]
  - Pancytopenia [Unknown]
  - Hepatic enzyme increased [Unknown]
